FAERS Safety Report 9928554 (Version 1)
Quarter: 2014Q1

REPORT INFORMATION
  Report Type: Spontaneous
  Country: US (occurrence: US)
  Receive Date: 20140227
  Receipt Date: 20140227
  Transmission Date: 20141002
  Serious: Yes (Hospitalization)
  Sender: FDA-Public Use
  Company Number: US-BAYER-2014-030688

PATIENT
  Age: 28 Year
  Sex: Female
  Weight: 97.51 kg

DRUGS (1)
  1. MIRENA [Suspect]
     Indication: CONTRACEPTION
     Dosage: 20 MCG/24HR, CONT
     Route: 015
     Dates: start: 20030715, end: 20040902

REACTIONS (5)
  - Embedded device [None]
  - Pain [None]
  - Depression [None]
  - Anxiety [None]
  - Menorrhagia [None]
